FAERS Safety Report 4600033-6 (Version None)
Quarter: 2005Q1

REPORT INFORMATION
  Report Type: 
  Country: None (occurrence: None)
  Receive Date: 20050302
  Receipt Date: 20050302
  Transmission Date: 20050727
  Serious: Yes (Other)
  Sender: FDA-Public Use
  Company Number: None

PATIENT
  Age: 8 Year
  Sex: Female
  Weight: 35.3806 kg

DRUGS (1)
  1. OMNICEF [Suspect]
     Indication: UPPER RESPIRATORY TRACT INFECTION
     Dosage: 250 (2X A DAY)
     Dates: start: 20050131, end: 20050209

REACTIONS (3)
  - DRUG INEFFECTIVE [None]
  - MOOD SWINGS [None]
  - SUICIDAL IDEATION [None]
